FAERS Safety Report 21972134 (Version 2)
Quarter: 2023Q1

REPORT INFORMATION
  Report Type: Report from Study
  Country: CN (occurrence: CN)
  Receive Date: 20230209
  Receipt Date: 20230217
  Transmission Date: 20230418
  Serious: Yes (Hospitalization)
  Sender: FDA-Public Use
  Company Number: CN-SA-SAC20221228000465

PATIENT
  Age: 66 Year
  Sex: Female
  Weight: 70 kg

DRUGS (15)
  1. DOCETAXEL [Suspect]
     Active Substance: DOCETAXEL
     Indication: Non-small cell lung cancer
     Dosage: 75 MG/M2, INFUSION RATE: 128 MG/H TILL 11:49
     Route: 042
     Dates: start: 20221220, end: 20221220
  2. COLLOIDAL ALUMINIUM PHOSPHATE [Concomitant]
     Indication: Prophylaxis
     Dosage: UNK
     Route: 048
     Dates: start: 20221219, end: 20221219
  3. COLLOIDAL ALUMINIUM PHOSPHATE [Concomitant]
     Dosage: UNK
     Route: 048
     Dates: start: 20221220, end: 20221221
  4. COLLOIDAL ALUMINIUM PHOSPHATE [Concomitant]
     Dosage: UNK
     Route: 041
     Dates: start: 20221226, end: 20221226
  5. DOXOFYLLINE [Concomitant]
     Active Substance: DOXOFYLLINE
     Indication: Prophylaxis
     Dosage: UNK
     Route: 041
     Dates: start: 20221207, end: 20221217
  6. FAT SOLUBLE VITAMIN (II) FOR INJECTION WATER SOLUBLE VITAMIN FOR INJEC [Concomitant]
     Indication: Prophylaxis
     Dosage: UNK
     Route: 041
     Dates: start: 20221207, end: 20221217
  7. AMBROXOL HYDROCHLORIDE [Concomitant]
     Active Substance: AMBROXOL HYDROCHLORIDE
     Dosage: UNK
     Route: 041
     Dates: start: 20221207, end: 20221217
  8. FAMOTIDINE [Concomitant]
     Active Substance: FAMOTIDINE
     Indication: Prophylaxis
     Dosage: UNK
     Route: 041
     Dates: start: 20221220, end: 20221221
  9. SODIUM POTASSIUM MAGNESIUM CALCIUM AND GLUCOSE [Concomitant]
     Indication: Prophylaxis
     Dosage: UNK
     Route: 041
     Dates: start: 20221220, end: 20221221
  10. TROPISETRON HYDROCHLORIDE [Concomitant]
     Active Substance: TROPISETRON HYDROCHLORIDE
     Indication: Prophylaxis
     Dosage: UNK
     Route: 041
     Dates: start: 20221220, end: 20221221
  11. HUMAN IMMUNOGLOBULIN G [Concomitant]
     Active Substance: HUMAN IMMUNOGLOBULIN G
     Indication: Prophylaxis
     Dosage: UNK
     Route: 041
     Dates: start: 20221226, end: 20221226
  12. DEXTROSE\SODIUM CHLORIDE [Concomitant]
     Active Substance: DEXTROSE\SODIUM CHLORIDE
     Indication: Prophylaxis
     Dosage: UNK
     Route: 041
     Dates: start: 20221226, end: 20221226
  13. MEROPENEM [Concomitant]
     Active Substance: MEROPENEM
     Indication: Prophylaxis
     Dosage: UNK
     Route: 041
     Dates: start: 20221226, end: 20221226
  14. ESOMEPRAZOLE SODIUM [Concomitant]
     Active Substance: ESOMEPRAZOLE SODIUM
     Indication: Prophylaxis
     Dosage: UNK
     Route: 041
     Dates: start: 20221226, end: 20221226
  15. CODEINE PHOSPHATE;IBUPROFEN [Concomitant]
     Indication: Prophylaxis
     Dosage: UNK
     Route: 041
     Dates: start: 20221226, end: 20221226

REACTIONS (1)
  - Agranulocytosis [Recovered/Resolved]

NARRATIVE: CASE EVENT DATE: 20221226
